FAERS Safety Report 5447644-6 (Version None)
Quarter: 2007Q3

REPORT INFORMATION
  Report Type: 
  Country: None (occurrence: None)
  Receive Date: 20070910
  Receipt Date: 20070831
  Transmission Date: 20080115
  Serious: Yes (Death)
  Sender: FDA-Public Use
  Company Number: AT-ROCHE-511201

PATIENT
  Age: 72 Year
  Sex: Female
  Weight: 57 kg

DRUGS (2)
  1. XELODA [Suspect]
     Dosage: STRENGTH 500MG AND 150 MG.
     Route: 065
  2. OXALIPLATIN [Concomitant]

REACTIONS (3)
  - AGRANULOCYTOSIS [None]
  - LYMPHOPENIA [None]
  - SEPSIS [None]
